FAERS Safety Report 16295193 (Version 1)
Quarter: 2019Q2

REPORT INFORMATION
  Report Type: Report from Study
  Country: US (occurrence: US)
  Receive Date: 20190509
  Receipt Date: 20190509
  Transmission Date: 20190711
  Serious: Yes (Death, Hospitalization, Other)
  Sender: FDA-Public Use
  Company Number: US-BRISTOL-MYERS SQUIBB COMPANY-BMS-2019-044698

PATIENT
  Age: 63 Year
  Sex: Female
  Weight: 87.7 kg

DRUGS (2)
  1. NIVOLUMAB [Suspect]
     Active Substance: NIVOLUMAB
     Indication: ADENOID CYSTIC CARCINOMA
     Dosage: 1 DOSAGE FORM
     Route: 042
     Dates: start: 20180816
  2. URELUMAB [Suspect]
     Active Substance: URELUMAB
     Indication: ADENOID CYSTIC CARCINOMA
     Dosage: UNK
     Route: 065
     Dates: start: 20180816

REACTIONS (2)
  - Respiratory failure [Fatal]
  - Malignant neoplasm progression [Fatal]

NARRATIVE: CASE EVENT DATE: 20190420
